FAERS Safety Report 21775436 (Version 1)
Quarter: 2022Q4

REPORT INFORMATION
  Report Type: Spontaneous
  Country: US (occurrence: US)
  Receive Date: 20221226
  Receipt Date: 20221226
  Transmission Date: 20230113
  Serious: Yes (Hospitalization, Other)
  Sender: FDA-Public Use
  Company Number: US-ALXN-A202215999

PATIENT
  Age: 47 Year
  Sex: Female

DRUGS (6)
  1. SOLIRIS [Suspect]
     Active Substance: ECULIZUMAB
     Indication: Antiphospholipid syndrome
     Dosage: UNK
     Route: 065
  2. SOLIRIS [Suspect]
     Active Substance: ECULIZUMAB
     Indication: Off label use
  3. MIDODRINE                          /00592802/ [Concomitant]
     Indication: Blood pressure measurement
     Dosage: UNK
     Route: 065
  4. MYCOPHENOLIC ACID [Concomitant]
     Active Substance: MYCOPHENOLIC ACID
     Indication: Antiphospholipid syndrome
     Dosage: UNK
     Route: 065
  5. MYCOPHENOLIC ACID [Concomitant]
     Active Substance: MYCOPHENOLIC ACID
     Indication: Systemic lupus erythematosus
  6. WARFARIN [Concomitant]
     Active Substance: WARFARIN
     Indication: Antiphospholipid syndrome
     Dosage: UNK
     Route: 065

REACTIONS (3)
  - Torsade de pointes [Recovered/Resolved]
  - Ventricular extrasystoles [Recovered/Resolved]
  - Off label use [Unknown]
